FAERS Safety Report 12418920 (Version 1)
Quarter: 2016Q2

REPORT INFORMATION
  Report Type: Spontaneous
  Country: DE (occurrence: DE)
  Receive Date: 20160531
  Receipt Date: 20160531
  Transmission Date: 20160815
  Serious: Yes (Other)
  Sender: FDA-Public Use
  Company Number: DE-MALLINCKRODT-T201601910

PATIENT
  Sex: Female

DRUGS (5)
  1. ZOPICLON [Concomitant]
     Active Substance: ZOPICLONE
     Indication: SLEEP DISORDER
     Dosage: 7.5 MG
     Route: 048
     Dates: start: 20120724
  2. LOSARTAN. [Suspect]
     Active Substance: LOSARTAN
     Indication: HYPERTENSION
     Dosage: 25 MG
     Route: 048
     Dates: start: 20111103
  3. IBUFLAM [Suspect]
     Active Substance: IBUPROFEN
     Indication: PAIN
     Dosage: 600 MG
     Route: 048
     Dates: start: 20121103
  4. AMILORID COMP [Concomitant]
     Active Substance: AMILORIDE HYDROCHLORIDE\HYDROCHLOROTHIAZIDE
     Indication: HYPERTENSION
     Dosage: 5/50 MG
     Dates: start: 20120808
  5. EXALGO [Suspect]
     Active Substance: HYDROMORPHONE HYDROCHLORIDE
     Indication: POLYARTHRITIS
     Dosage: 12 MG
     Route: 048
     Dates: start: 201203

REACTIONS (1)
  - Haemorrhage subcutaneous [Not Recovered/Not Resolved]
